FAERS Safety Report 5713927-5 (Version None)
Quarter: 2008Q2

REPORT INFORMATION
  Report Type: 
  Country: None (occurrence: None)
  Receive Date: 20080421
  Receipt Date: 20080421
  Transmission Date: 20081010
  Serious: Yes (Life-Threatening)
  Sender: FDA-Public Use
  Company Number: None

PATIENT
  Age: 51 Year
  Sex: Female
  Weight: 74.3899 kg

DRUGS (3)
  1. AVELOX [Suspect]
     Indication: OSTEOMYELITIS
     Dosage: 1 TABLET DAILY
     Dates: start: 20071029, end: 20071104
  2. STEROIDS [Concomitant]
  3. EPINEPHRINE [Concomitant]

REACTIONS (7)
  - ANAPHYLACTIC SHOCK [None]
  - ANGER [None]
  - ANXIETY [None]
  - FEAR [None]
  - INSOMNIA [None]
  - POST-TRAUMATIC STRESS DISORDER [None]
  - SENSATION OF FOREIGN BODY [None]
